FAERS Safety Report 6148495-X (Version None)
Quarter: 2009Q2

REPORT INFORMATION
  Report Type: 
  Country: None (occurrence: None)
  Receive Date: 20090408
  Receipt Date: 20090330
  Transmission Date: 20091009
  Serious: Yes (Hospitalization)
  Sender: FDA-Public Use
  Company Number: PHHY2008GB31941

PATIENT
  Sex: Male

DRUGS (4)
  1. CLOZARIL [Suspect]
     Indication: SCHIZOPHRENIA
     Dosage: 50 MG
     Route: 047
     Dates: start: 20081127, end: 20081201
  2. SULPIRIDE [Concomitant]
     Indication: SCHIZOPHRENIA
     Dosage: 1000 MG
     Route: 048
  3. SERTRALINE HCL [Concomitant]
     Indication: DEPRESSION
     Dosage: 150 MG DAILY
     Route: 048
  4. LOESTRIN 1.5/30 [Concomitant]
     Indication: CONTRACEPTION
     Dosage: 1 TABLET DAILY
     Route: 048

REACTIONS (6)
  - C-REACTIVE PROTEIN INCREASED [None]
  - DIZZINESS [None]
  - GASTROOESOPHAGEAL REFLUX DISEASE [None]
  - NON-CARDIAC CHEST PAIN [None]
  - PALPITATIONS [None]
  - WHITE BLOOD CELL COUNT INCREASED [None]
